FAERS Safety Report 17684231 (Version 1)
Quarter: 2020Q2

REPORT INFORMATION
  Report Type: Spontaneous
  Country: US (occurrence: US)
  Receive Date: 20200420
  Receipt Date: 20200420
  Transmission Date: 20200714
  Serious: No
  Sender: FDA-Public Use
  Company Number: NVSC2020US104672

PATIENT
  Age: 43 Year
  Sex: Male

DRUGS (1)
  1. SIGNIFOR LAR [Suspect]
     Active Substance: PASIREOTIDE PAMOATE
     Indication: PRODUCT USED FOR UNKNOWN INDICATION
     Dosage: 40 MG (EVERY 28 DAYS)
     Route: 065

REACTIONS (3)
  - Weight increased [Unknown]
  - Swelling [Unknown]
  - Skin tightness [Unknown]
